FAERS Safety Report 4525313-4 (Version None)
Quarter: 2005Q1

REPORT INFORMATION
  Report Type: 
  Country: None (occurrence: None)
  Receive Date: 20041116
  Receipt Date: 20040810
  Transmission Date: 20050727
  Serious: No
  Sender: FDA-Public Use
  Company Number: S04-USA-05746-01

PATIENT
  Age: 80 Year
  Sex: Female

DRUGS (12)
  1. NAMENDA [Suspect]
     Indication: DEMENTIA ALZHEIMER'S TYPE
     Dosage: 5 MG QD; PO
     Route: 048
     Dates: start: 20040714, end: 20040720
  2. NAMENDA [Suspect]
     Indication: DEMENTIA ALZHEIMER'S TYPE
     Dosage: 10 MG QD; PO
     Route: 048
     Dates: start: 20040721, end: 20040727
  3. NAMENDA [Suspect]
     Indication: DEMENTIA ALZHEIMER'S TYPE
     Dosage: 15 MG QD; PO
     Route: 048
     Dates: start: 20040728, end: 20040803
  4. NAMENDA [Suspect]
     Indication: DEMENTIA ALZHEIMER'S TYPE
     Dosage: 20 MG QD; PO
     Route: 048
     Dates: start: 20040804
  5. POTASSIUM [Concomitant]
  6. MULTI-VITAMIN [Concomitant]
  7. GLUOCOSAMINE [Concomitant]
  8. BLOOD PRESSURE MEDICATION (NOS) [Concomitant]
  9. WATER PILL (NOS) [Concomitant]
  10. HEART MEDICATION (NOS) [Concomitant]
  11. COUMADIN [Concomitant]
  12. THYROID MEDICATION (NOS) [Concomitant]

REACTIONS (2)
  - AGGRESSION [None]
  - CONFUSIONAL STATE [None]
